FAERS Safety Report 8013012-6 (Version None)
Quarter: 2011Q4

REPORT INFORMATION
  Report Type: 
  Country: None (occurrence: None)
  Receive Date: 20111229
  Receipt Date: 20111219
  Transmission Date: 20120403
  Serious: Yes (Death)
  Sender: FDA-Public Use
  Company Number: US-PFIZER INC-2011310073

PATIENT
  Age: 39 Year
  Sex: Female

DRUGS (4)
  1. ACETAMINOPHEN WITH PROPOXYPHENE HCL TAB [Suspect]
     Dosage: UNK
     Route: 048
  2. ACETAMINOPHEN [Suspect]
     Dosage: UNK
     Route: 048
  3. ALPRAZOLAM [Suspect]
     Dosage: UNK
     Route: 048
  4. QUETIAPINE [Suspect]
     Dosage: UNK
     Route: 048

REACTIONS (4)
  - INTENTIONAL DRUG MISUSE [None]
  - COMPLETED SUICIDE [None]
  - CARDIAC ARREST [None]
  - RESPIRATORY ARREST [None]
